FAERS Safety Report 25138823 (Version 4)
Quarter: 2025Q3

REPORT INFORMATION
  Report Type: Spontaneous
  Country: US (occurrence: US)
  Receive Date: 20250331
  Receipt Date: 20250819
  Transmission Date: 20251021
  Serious: Yes (Other)
  Sender: SANOFI AVENTIS
  Company Number: US-SA-2025SA090930

PATIENT
  Age: 59 Year
  Sex: Male

DRUGS (3)
  1. DUPIXENT [Suspect]
     Active Substance: DUPILUMAB
     Indication: Nasal polyps
     Dosage: 300 MG, QOW
     Route: 058
     Dates: start: 20240925
  2. DUPIXENT [Suspect]
     Active Substance: DUPILUMAB
     Indication: Asthma
  3. DUPIXENT [Suspect]
     Active Substance: DUPILUMAB
     Indication: Hypersensitivity

REACTIONS (10)
  - Lyme disease [Unknown]
  - Erythema migrans [Recovered/Resolved]
  - Rash [Recovered/Resolved]
  - Injection site haemorrhage [Unknown]
  - Nasal congestion [Unknown]
  - Rhinorrhoea [Unknown]
  - Eye pruritus [Recovered/Resolved]
  - Condition aggravated [Recovered/Resolved]
  - Injection site pain [Unknown]
  - Product use in unapproved indication [Unknown]

NARRATIVE: CASE EVENT DATE: 20240901
